FAERS Safety Report 6411059-4 (Version None)
Quarter: 2009Q4

REPORT INFORMATION
  Report Type: 
  Country: None (occurrence: None)
  Receive Date: 20091021
  Receipt Date: 20091021
  Transmission Date: 20100525
  Serious: Yes (Life-Threatening, Hospitalization)
  Sender: FDA-Public Use
  Company Number: None

PATIENT
  Age: 76 Year
  Sex: Female

DRUGS (4)
  1. DIOVAN HCT [Suspect]
     Indication: HYPERTENSION
     Dosage: 80/12.5MG DAILY PO
     Route: 048
     Dates: start: 20071201, end: 20090826
  2. DILTIAZEM EXTENDED RELEASE 240MG [Suspect]
     Indication: ANGINA PECTORIS
     Dosage: 240MG DAILY PO
     Route: 048
     Dates: start: 20071201, end: 20090826
  3. DILTIAZEM EXTENDED RELEASE 240MG [Suspect]
     Indication: HYPERTENSION
     Dosage: 240MG DAILY PO
     Route: 048
     Dates: start: 20071201, end: 20090826
  4. ASPIRIN [Concomitant]

REACTIONS (4)
  - ANAPHYLACTIC REACTION [None]
  - ANGIOEDEMA [None]
  - DRUG HYPERSENSITIVITY [None]
  - FOOD ALLERGY [None]
